FAERS Safety Report 4293982-2 (Version None)
Quarter: 2004Q1

REPORT INFORMATION
  Report Type: 
  Country: None (occurrence: None)
  Receive Date: 20040210
  Receipt Date: 20040202
  Transmission Date: 20041129
  Serious: Yes (Disabling)
  Sender: FDA-Public Use
  Company Number: MYVW-PR-0312S-0098

PATIENT
  Age: 90 Year
  Sex: Male

DRUGS (4)
  1. MYOVIEW (TECHNETIUM TC99 TETROFOSMIN) [Suspect]
     Indication: ELECTROCARDIOGRAM ABNORMAL
     Dosage: SEE IMAGE
     Route: 042
     Dates: start: 20030717, end: 20030717
  2. MYOVIEW (TECHNETIUM TC99 TETROFOSMIN) [Suspect]
     Indication: ELECTROCARDIOGRAM ABNORMAL
     Dosage: SEE IMAGE
     Route: 042
     Dates: start: 20030717, end: 20030717
  3. TECHNETIUM TC 99M GENERATOR [Concomitant]
  4. ADENOSINE [Concomitant]

REACTIONS (2)
  - OPTIC NEURITIS [None]
  - VISION BLURRED [None]
